FAERS Safety Report 7749920-0 (Version None)
Quarter: 2011Q3

REPORT INFORMATION
  Report Type: 
  Country: None (occurrence: None)
  Receive Date: 20110914
  Receipt Date: 20110907
  Transmission Date: 20111222
  Serious: Yes (Death, Other)
  Sender: FDA-Public Use
  Company Number: US-BAYER-2011-057735

PATIENT
  Age: 70 Year
  Sex: Male
  Weight: 114.29 kg

DRUGS (3)
  1. NEXAVAR [Suspect]
     Indication: NEOPLASM MALIGNANT
     Dosage: 400 MG, BID
     Dates: start: 20101204, end: 20110103
  2. NEXAVAR [Suspect]
     Dosage: 400 MG, BID
     Dates: start: 20110128, end: 20110228
  3. NEXAVAR [Suspect]
     Dosage: 400 MG, BID
     Dates: start: 20110315, end: 20110602

REACTIONS (4)
  - CARDIAC FAILURE CONGESTIVE [None]
  - OEDEMA PERIPHERAL [None]
  - DYSPNOEA [None]
  - DEATH [None]
